FAERS Safety Report 6292025-9 (Version None)
Quarter: 2009Q3

REPORT INFORMATION
  Report Type: 
  Country: None (occurrence: None)
  Receive Date: 20090730
  Receipt Date: 20090720
  Transmission Date: 20100115
  Serious: Yes (Other)
  Sender: FDA-Public Use
  Company Number: US-TYCO HEALTHCARE/MALLINCKRODT-T200801689

PATIENT

DRUGS (18)
  1. OPTIMARK [Suspect]
     Indication: NUCLEAR MAGNETIC RESONANCE IMAGING
     Dosage: UNK, SINGLE
     Dates: start: 20050304, end: 20050304
  2. OPTIMARK [Suspect]
  3. OMNISCAN [Suspect]
     Indication: ANGIOGRAM
     Dosage: 20 ML, SINGLE
     Dates: start: 20030402, end: 20030402
  4. CELLCEPT [Concomitant]
     Indication: RENAL TRANSPLANT
     Dosage: 500 MG, BID
     Dates: start: 20080101
  5. PROGRAFT [Concomitant]
     Indication: RENAL TRANSPLANT
     Dosage: 1.5 MG, BID
     Dates: start: 20080101
  6. PREDNISONE TAB [Concomitant]
     Indication: RENAL TRANSPLANT
     Dosage: 5 MG, QD
  7. PLAVIX [Concomitant]
     Indication: RENAL TRANSPLANT
     Dosage: 75 MG, QD
  8. ASPIRIN [Concomitant]
     Indication: RENAL TRANSPLANT
     Dosage: 81 MG, QD
  9. AMBIEN [Concomitant]
     Indication: INSOMNIA
     Dosage: UNK, UNK
  10. LIPITOR [Concomitant]
     Indication: BLOOD CHOLESTEROL INCREASED
     Dosage: 40 MG, QD
  11. SARLIX [Concomitant]
     Indication: DIABETES MELLITUS
     Dosage: 120 MG, TID WITH MEALS
  12. JANUVIA [Concomitant]
     Indication: DIABETES MELLITUS
     Dosage: 100 MG, ONE PER DAY
  13. DIOVAN                             /01319601/ [Concomitant]
     Indication: BLOOD PRESSURE INCREASED
     Dosage: 320 MG, ONE PER DAY
  14. NEURONTIN [Concomitant]
     Indication: NEUROPATHY PERIPHERAL
     Dosage: 300 MG, QD
  15. COREG [Concomitant]
     Dosage: 3.125 MG, BID
  16. IMDUR [Concomitant]
     Dosage: 30 MG, QD
  17. FLOMAX [Concomitant]
     Dosage: .04 MG, QD
  18. ANTI-REJECTION MEDICATIONS [Concomitant]
     Indication: RENAL TRANSPLANT
     Dates: start: 20080101

REACTIONS (2)
  - NEPHROGENIC SYSTEMIC FIBROSIS [None]
  - OFF LABEL USE [None]
